FAERS Safety Report 16116210 (Version 4)
Quarter: 2019Q2

REPORT INFORMATION
  Report Type: Report from Study
  Country: GB (occurrence: GB)
  Receive Date: 20190326
  Receipt Date: 20190507
  Transmission Date: 20190711
  Serious: Yes (Hospitalization)
  Sender: FDA-Public Use
  Company Number: GB-ROCHE-2285558

PATIENT
  Age: 52 Year
  Sex: Male
  Weight: 102.7 kg

DRUGS (1)
  1. TOCILIZUMAB. [Suspect]
     Active Substance: TOCILIZUMAB
     Indication: RHEUMATOID ARTHRITIS
     Dosage: LAST DOSE OF TOCILIZUMAB PRIOR TO SERIOUS ADVERSE EVENT ON 07/MAR/2019
     Route: 058
     Dates: start: 20180920

REACTIONS (5)
  - Nystagmus [Recovered/Resolved]
  - Mallory-Weiss syndrome [Recovered/Resolved]
  - Pallor [Unknown]
  - Nausea [Unknown]
  - Labyrinthitis [Recovered/Resolved]

NARRATIVE: CASE EVENT DATE: 20190314
